FAERS Safety Report 9391663 (Version 1)
Quarter: 2013Q3

REPORT INFORMATION
  Report Type: Spontaneous
  Country: US (occurrence: US)
  Receive Date: 20130709
  Receipt Date: 20130709
  Transmission Date: 20140515
  Serious: Yes (Other)
  Sender: FDA-Public Use
  Company Number: US-009507513-1307USA002580

PATIENT
  Age: 47 Year
  Sex: Female

DRUGS (3)
  1. ZOCOR [Suspect]
     Indication: BLOOD CHOLESTEROL INCREASED
     Dosage: 40 MG, QW, ONCE EVERY FRIDAY BEFORE BED
     Route: 048
     Dates: start: 20130315, end: 20130322
  2. ASPIRIN [Concomitant]
     Dosage: STRENGTH 325 MG
  3. CHOLECALCIFEROL [Concomitant]
     Dosage: STRENGTH 100 MG

REACTIONS (1)
  - Rash generalised [Recovering/Resolving]
